FAERS Safety Report 4725481-5 (Version None)
Quarter: 2005Q3

REPORT INFORMATION
  Report Type: 
  Country: None (occurrence: None)
  Receive Date: 20050727
  Receipt Date: 20050721
  Transmission Date: 20060218
  Serious: Yes (Hospitalization)
  Sender: FDA-Public Use
  Company Number: PHFR2005GB02537

PATIENT
  Age: 53 Year
  Sex: Female

DRUGS (1)
  1. TEGRETOL [Suspect]
     Indication: NEUROPATHIC PAIN

REACTIONS (2)
  - AREFLEXIA [None]
  - DYSPHAGIA [None]
